FAERS Safety Report 14599174 (Version 1)
Quarter: 2018Q1

REPORT INFORMATION
  Report Type: Spontaneous
  Country: IL (occurrence: IL)
  Receive Date: 20180305
  Receipt Date: 20180305
  Transmission Date: 20180509
  Serious: Yes (Other)
  Sender: FDA-Public Use
  Company Number: IL-TEVA-2018-IL-863962

PATIENT
  Age: 82 Year
  Sex: Male

DRUGS (3)
  1. GLUCOSE [Concomitant]
     Active Substance: DEXTROSE
     Dosage: 2 EXCHANGES PER DAY
     Route: 065
  2. ICODEXTRIN [Suspect]
     Active Substance: ICODEXTRIN
     Route: 065
  3. FUROSEMIDE. [Suspect]
     Active Substance: FUROSEMIDE
     Indication: DIURETIC THERAPY
     Route: 065

REACTIONS (2)
  - Hip fracture [Not Recovered/Not Resolved]
  - Hyponatraemia [Not Recovered/Not Resolved]
